FAERS Safety Report 16318804 (Version 1)
Quarter: 2019Q2

REPORT INFORMATION
  Report Type: Spontaneous
  Country: TR (occurrence: TR)
  Receive Date: 20190516
  Receipt Date: 20190516
  Transmission Date: 20190711
  Serious: Yes (Hospitalization, Other)
  Sender: FDA-Public Use
  Company Number: TR-ACCORD-127768

PATIENT
  Age: 24 Year
  Sex: Male

DRUGS (2)
  1. MYCOPHENOLIC ACID. [Suspect]
     Active Substance: MYCOPHENOLIC ACID
     Indication: IMMUNOSUPPRESSANT DRUG THERAPY
  2. METHYLPREDNISOLONE. [Suspect]
     Active Substance: METHYLPREDNISOLONE
     Indication: IMMUNOSUPPRESSANT DRUG THERAPY

REACTIONS (10)
  - Pulmonary cavitation [Recovering/Resolving]
  - Infectious pleural effusion [Recovering/Resolving]
  - Ecchymosis [Recovering/Resolving]
  - Nocardiosis [Recovering/Resolving]
  - Maculopathy [Recovering/Resolving]
  - Rash erythematous [Recovering/Resolving]
  - Abscess bacterial [Recovering/Resolving]
  - Pulmonary mass [Recovering/Resolving]
  - Pleural effusion [Recovering/Resolving]
  - Central nervous system lesion [Recovering/Resolving]
